FAERS Safety Report 4734193-3 (Version None)
Quarter: 2005Q3

REPORT INFORMATION
  Report Type: 
  Country: None (occurrence: None)
  Receive Date: 20050803
  Receipt Date: 20050803
  Transmission Date: 20060218
  Serious: Yes (Other)
  Sender: FDA-Public Use
  Company Number: None

PATIENT
  Age: 70 Year
  Sex: Female

DRUGS (4)
  1. CARBOPLATIN [Suspect]
     Indication: NEOPLASM MALIGNANT
     Dosage: 82MG IV Q WEEK X 5
     Route: 042
     Dates: start: 20050620
  2. CARBOPLATIN [Suspect]
     Indication: NEOPLASM MALIGNANT
     Dosage: 82MG IV Q WEEK X 5
     Route: 042
     Dates: start: 20050627
  3. CARBOPLATIN [Suspect]
     Indication: NEOPLASM MALIGNANT
     Dosage: 82MG IV Q WEEK X 5
     Route: 042
     Dates: start: 20050705
  4. CARBOPLATIN [Suspect]
     Indication: NEOPLASM MALIGNANT
     Dosage: 82MG IV Q WEEK X 5
     Route: 042
     Dates: start: 20050719

REACTIONS (4)
  - FLUSHING [None]
  - INFUSION RELATED REACTION [None]
  - PRURITUS [None]
  - WHEEZING [None]
